FAERS Safety Report 4956622-2 (Version None)
Quarter: 2006Q1

REPORT INFORMATION
  Report Type: 
  Country: None (occurrence: None)
  Receive Date: 20060322
  Receipt Date: 20060307
  Transmission Date: 20060701
  Serious: Yes (Other)
  Sender: FDA-Public Use
  Company Number: A-US2005-08758

PATIENT
  Age: 72 Year
  Sex: Female

DRUGS (2)
  1. TRACLEER [Suspect]
     Indication: PULMONARY HYPERTENSION
     Dosage: 62.5; 125 MG, BID, ORAL
     Route: 048
     Dates: start: 20041101, end: 20050301
  2. TRACLEER [Suspect]
     Indication: PULMONARY HYPERTENSION
     Dosage: 62.5; 125 MG, BID, ORAL
     Route: 048
     Dates: start: 20050301

REACTIONS (1)
  - HEPATITIS A [None]
